FAERS Safety Report 9397677 (Version 1)
Quarter: 2013Q3

REPORT INFORMATION
  Report Type: Report from Study
  Country: DE (occurrence: DE)
  Receive Date: 20130712
  Receipt Date: 20130712
  Transmission Date: 20140515
  Serious: Yes (Hospitalization)
  Sender: FDA-Public Use
  Company Number: DE-SANOFI-AVENTIS-2013SA062571

PATIENT
  Age: 73 Year
  Sex: Male

DRUGS (10)
  1. OXALIPLATIN [Suspect]
     Indication: GASTROOESOPHAGEAL CANCER
     Route: 041
     Dates: start: 20130605, end: 20130605
  2. DOCETAXEL [Suspect]
     Indication: GASTROOESOPHAGEAL CANCER
     Route: 041
     Dates: start: 20130605, end: 20130605
  3. 5-FU [Suspect]
     Indication: GASTROOESOPHAGEAL CANCER
     Route: 041
     Dates: start: 20130605, end: 20130605
  4. FOLINIC ACID [Suspect]
     Indication: GASTROOESOPHAGEAL CANCER
     Route: 042
     Dates: start: 20130605, end: 20130605
  5. GLUCOSE [Concomitant]
  6. DEXAMETHASONE [Concomitant]
  7. PALONOSETRON [Concomitant]
  8. RANITIDINE [Concomitant]
  9. CLEMASTINE [Concomitant]
  10. CALCIUM/MAGNESIUM [Concomitant]

REACTIONS (6)
  - Diarrhoea [Recovered/Resolved]
  - Dehydration [Recovered/Resolved]
  - Hypokalaemia [Recovered/Resolved]
  - Inflammation [Recovered/Resolved]
  - Pyrexia [Recovered/Resolved]
  - Subclavian vein thrombosis [Recovered/Resolved]
